FAERS Safety Report 13212722 (Version 2)
Quarter: 2017Q1

REPORT INFORMATION
  Report Type: Spontaneous
  Country: CH (occurrence: CH)
  Receive Date: 20170210
  Receipt Date: 20170222
  Transmission Date: 20170428
  Serious: Yes (Other)
  Sender: FDA-Public Use
  Company Number: CH-PFIZER INC-2017053278

PATIENT
  Age: 16 Year
  Sex: Female
  Weight: 61.4 kg

DRUGS (5)
  1. AKINETON [Suspect]
     Active Substance: BIPERIDEN HYDROCHLORIDE
     Indication: NECK PAIN
     Dosage: 2 MG, UNK
     Route: 048
     Dates: start: 20170110, end: 20170110
  2. DICLOFENAC [Interacting]
     Active Substance: DICLOFENAC
     Indication: NECK PAIN
     Dosage: 25 MG, UNK
     Route: 048
     Dates: start: 20170110, end: 20170110
  3. TEMESTA [Suspect]
     Active Substance: LORAZEPAM
     Indication: INTENTIONAL SELF-INJURY
     Dosage: UNK
  4. HALDOL [Interacting]
     Active Substance: HALOPERIDOL
     Indication: INTENTIONAL SELF-INJURY
     Dosage: UNK
  5. FLUOXETIN [Interacting]
     Active Substance: FLUOXETINE HYDROCHLORIDE
     Indication: INTENTIONAL SELF-INJURY
     Dosage: UNK

REACTIONS (6)
  - Somnolence [Unknown]
  - Vertigo [Unknown]
  - Hypotension [Unknown]
  - Drug interaction [Unknown]
  - Neck pain [Unknown]
  - Extrapyramidal disorder [Unknown]

NARRATIVE: CASE EVENT DATE: 20170110
